FAERS Safety Report 4584723-X (Version None)
Quarter: 2005Q1

REPORT INFORMATION
  Report Type: 
  Country: None (occurrence: None)
  Receive Date: 20050211
  Receipt Date: 20050204
  Transmission Date: 20050727
  Serious: Yes (Other)
  Sender: FDA-Public Use
  Company Number: GBWYE406008FEB05

PATIENT

DRUGS (2)
  1. LODINE XL [Suspect]
     Indication: RHEUMATOID ARTHRITIS
     Dosage: 600 MG 1X PER 1 DAY ORAL
     Route: 048
     Dates: start: 20040715
  2. SULFASALAZINE [Suspect]
     Indication: RHEUMATOID ARTHRITIS
     Dosage: 1 G 2X PER 1 DAY ORAL
     Route: 048
     Dates: start: 20040303

REACTIONS (3)
  - ABORTION INDUCED [None]
  - DRUG EXPOSURE DURING PREGNANCY [None]
  - TRISOMY 13 [None]
